FAERS Safety Report 17349750 (Version 1)
Quarter: 2020Q1

REPORT INFORMATION
  Report Type: Spontaneous
  Country: US (occurrence: US)
  Receive Date: 20200115
  Receipt Date: 20200115
  Transmission Date: 20200409
  Serious: Yes (Other)
  Sender: FDA-Public Use
  Company Number: None

PATIENT
  Age: 27 Year
  Sex: Female
  Weight: 54.43 kg

DRUGS (1)
  1. SUBOXONE [Suspect]
     Active Substance: BUPRENORPHINE HYDROCHLORIDE\NALOXONE HYDROCHLORIDE
     Indication: SUBSTANCE USE DISORDER
     Route: 060
     Dates: start: 20181002

REACTIONS (1)
  - Migraine [None]

NARRATIVE: CASE EVENT DATE: 20181002
